FAERS Safety Report 8581328-0 (Version None)
Quarter: 2012Q3

REPORT INFORMATION
  Report Type: 
  Country: None (occurrence: None)
  Receive Date: 20120809
  Receipt Date: 20120730
  Transmission Date: 20120928
  Serious: Yes (Hospitalization)
  Sender: FDA-Public Use
  Company Number: FR-NOVOPROD-357010

PATIENT
  Age: 27 Year
  Sex: Female

DRUGS (7)
  1. VALPROIC ACID [Concomitant]
  2. LISPRO INSULIN [Concomitant]
  3. CLONAZEPAM [Concomitant]
  4. TOPIRAMATE [Concomitant]
  5. LEVETIRACETAM [Concomitant]
  6. CARBAMAZEPINE [Concomitant]
  7. LEVEMIR [Suspect]
     Indication: TYPE 1 DIABETES MELLITUS

REACTIONS (2)
  - CONVULSION [None]
  - BLOOD GLUCOSE INCREASED [None]
